FAERS Safety Report 25886651 (Version 3)
Quarter: 2025Q4

REPORT INFORMATION
  Report Type: Spontaneous
  Country: US (occurrence: US)
  Receive Date: 20251006
  Receipt Date: 20251212
  Transmission Date: 20260118
  Serious: Yes (Hospitalization)
  Sender: SANDOZ
  Company Number: US-SANDOZ-SDZ2025US070542

PATIENT
  Sex: Female

DRUGS (2)
  1. ALBUTEROL SULFATE [Suspect]
     Active Substance: ALBUTEROL SULFATE
     Dosage: 90MCG/DOS 200DOS (2 PUFFS, EVERY 6 HOURS),
     Route: 055
  2. ALBUTEROL SULFATE [Suspect]
     Active Substance: ALBUTEROL SULFATE
     Indication: Dyspnoea
     Dosage: 90MCG/DOS 200DOS (2 PUFFS, EVERY 6 HOURS),
     Route: 055

REACTIONS (5)
  - Hospitalisation [Unknown]
  - Wrong technique in device usage process [Unknown]
  - Drug administered in wrong device [Unknown]
  - Drug dose omission by device [Unknown]
  - Device mechanical issue [Unknown]
